FAERS Safety Report 4270402-5 (Version None)
Quarter: 2004Q1

REPORT INFORMATION
  Report Type: 
  Country: None (occurrence: None)
  Receive Date: 20040113
  Receipt Date: 20040113
  Transmission Date: 20041129
  Serious: Yes (Life-Threatening)
  Sender: FDA-Public Use
  Company Number: None

PATIENT
  Age: 65 Year
  Sex: Male

DRUGS (3)
  1. LISINOPRIL [Suspect]
     Indication: HYPERTENSION
     Dosage: 20 MG QD
     Dates: start: 20030111, end: 20030614
  2. ATENOLOL [Concomitant]
  3. INDOMETHAIN [Concomitant]

REACTIONS (1)
  - ANGIONEUROTIC OEDEMA [None]
